FAERS Safety Report 25616196 (Version 1)
Quarter: 2025Q3

REPORT INFORMATION
  Report Type: Spontaneous
  Country: PS (occurrence: PS)
  Receive Date: 20250729
  Receipt Date: 20250729
  Transmission Date: 20251021
  Serious: Yes (Other)
  Sender: ACCORD
  Company Number: PS-MLMSERVICE-20250716-PI572954-00152-8

PATIENT
  Age: 54 Year
  Sex: Female

DRUGS (8)
  1. FLUOROURACIL [Suspect]
     Active Substance: FLUOROURACIL
     Indication: Adenocarcinoma of colon
  2. IRINOTECAN [Suspect]
     Active Substance: IRINOTECAN
     Indication: Adenocarcinoma of colon
  3. CETUXIMAB [Suspect]
     Active Substance: CETUXIMAB
     Indication: Adenocarcinoma of colon
  4. LEUCOVORIN [Suspect]
     Active Substance: LEUCOVORIN\LEUCOVORIN CALCIUM
     Indication: Adenocarcinoma of colon
  5. IRINOTECAN [Suspect]
     Active Substance: IRINOTECAN
     Indication: Metastases to heart
  6. CETUXIMAB [Suspect]
     Active Substance: CETUXIMAB
     Indication: Metastases to heart
  7. LEUCOVORIN [Suspect]
     Active Substance: LEUCOVORIN\LEUCOVORIN CALCIUM
     Indication: Metastases to heart
  8. FLUOROURACIL [Suspect]
     Active Substance: FLUOROURACIL
     Indication: Metastases to heart

REACTIONS (1)
  - Acute kidney injury [Unknown]
